FAERS Safety Report 13949239 (Version 1)
Quarter: 2017Q3

REPORT INFORMATION
  Report Type: Spontaneous
  Country: US (occurrence: US)
  Receive Date: 20170908
  Receipt Date: 20170908
  Transmission Date: 20171128
  Serious: No
  Sender: FDA-Public Use
  Company Number: US-JAZZ-2017-US-009984

PATIENT
  Sex: Female

DRUGS (18)
  1. IBUPROFEN. [Concomitant]
     Active Substance: IBUPROFEN
  2. VITAMIN D                          /00107901/ [Concomitant]
     Active Substance: ERGOCALCIFEROL
  3. VITAMIN K [Concomitant]
     Active Substance: PHYTONADIONE
  4. CAL MAG ZINC [Concomitant]
  5. XYREM [Suspect]
     Active Substance: SODIUM OXYBATE
     Dosage: DOSE ADJUSTMENT
     Route: 048
     Dates: start: 201701, end: 2017
  6. ADDERALL [Concomitant]
     Active Substance: AMPHETAMINE ASPARTATE\AMPHETAMINE SULFATE\DEXTROAMPHETAMINE SACCHARATE\DEXTROAMPHETAMINE SULFATE
  7. VITAMIN C [Concomitant]
     Active Substance: ASCORBIC ACID
  8. XYREM [Suspect]
     Active Substance: SODIUM OXYBATE
     Indication: CATAPLEXY
     Dosage: 2.25 G, BID
     Route: 048
     Dates: start: 201612, end: 201701
  9. MAGNESIUM CHELATE [Concomitant]
     Active Substance: MAGNESIUM
  10. VALTREX [Concomitant]
     Active Substance: VALACYCLOVIR HYDROCHLORIDE
  11. ZINC. [Concomitant]
     Active Substance: ZINC
  12. VITAMIN K [Concomitant]
     Active Substance: PHYTONADIONE
  13. SYNTHROID [Concomitant]
     Active Substance: LEVOTHYROXINE SODIUM
  14. VOLTAREN [Concomitant]
     Active Substance: DICLOFENAC SODIUM
  15. XYREM [Suspect]
     Active Substance: SODIUM OXYBATE
     Indication: NARCOLEPSY
     Dosage: 2.25G, BID
     Route: 048
     Dates: start: 201512, end: 2016
  16. SPIRONOLACTONE. [Concomitant]
     Active Substance: SPIRONOLACTONE
  17. XYREM [Suspect]
     Active Substance: SODIUM OXYBATE
     Dosage: 4.5 G, BID
     Route: 048
     Dates: start: 2017
  18. DICLOFENAC SODIUM. [Concomitant]
     Active Substance: DICLOFENAC SODIUM

REACTIONS (4)
  - Immune system disorder [Unknown]
  - Thyroid disorder [Unknown]
  - Inflammation [Not Recovered/Not Resolved]
  - Metabolic syndrome [Not Recovered/Not Resolved]
